FAERS Safety Report 10358769 (Version 2)
Quarter: 2014Q3

REPORT INFORMATION
  Report Type: Report from Study
  Country: US (occurrence: US)
  Receive Date: 20140804
  Receipt Date: 20140804
  Transmission Date: 20150326
  Serious: Yes (Death, Hospitalization)
  Sender: FDA-Public Use
  Company Number: US-ROCHE-1413792

PATIENT
  Age: 70 Year
  Sex: Male
  Weight: 102.6 kg

DRUGS (2)
  1. BEVACIZUMAB [Suspect]
     Active Substance: BEVACIZUMAB
     Indication: GLIOBLASTOMA MULTIFORME
     Dosage: TOTAL DOSE IN THE CURRENT COURSE: 1039 MG?DATE OF LAST DOSE BEFORE AE ONSET: 09/JUL/2014
     Route: 065
     Dates: start: 20140416
  2. BLINDED DASATINIB [Suspect]
     Active Substance: DASATINIB
     Indication: GLIOBLASTOMA MULTIFORME
     Route: 065
     Dates: start: 20140416, end: 20140519

REACTIONS (10)
  - Pneumonia [Fatal]
  - Tachypnoea [Unknown]
  - Dehydration [Recovered/Resolved]
  - Pain in extremity [Recovered/Resolved]
  - Confusional state [Recovering/Resolving]
  - Agitation [Recovered/Resolved]
  - Rash maculo-papular [Recovering/Resolving]
  - Sepsis [Unknown]
  - Jejunal perforation [Unknown]
  - Pyrexia [Recovered/Resolved]

NARRATIVE: CASE EVENT DATE: 20140514
